FAERS Safety Report 13523262 (Version 1)
Quarter: 2017Q2

REPORT INFORMATION
  Report Type: Spontaneous
  Country: US (occurrence: US)
  Receive Date: 20170508
  Receipt Date: 20170508
  Transmission Date: 20170830
  Serious: No
  Sender: FDA-Public Use
  Company Number: US-VIFOR (INTERNATIONAL) INC.-VIT-2017-01359

PATIENT
  Sex: Male

DRUGS (6)
  1. OCUVITE [Concomitant]
     Active Substance: VITAMINS
  2. LANTUS [Concomitant]
     Active Substance: INSULIN GLARGINE
  3. VITAMINS NOS [Concomitant]
     Active Substance: VITAMINS
  4. GLUCOSAMINE [Concomitant]
     Active Substance: GLUCOSAMINE
  5. VELTASSA [Suspect]
     Active Substance: PATIROMER
     Indication: HYPERKALAEMIA
     Route: 048
  6. NOVOLOG [Concomitant]
     Active Substance: INSULIN ASPART

REACTIONS (4)
  - Dyspnoea [Unknown]
  - Constipation [Unknown]
  - Insomnia [Unknown]
  - Lacrimation increased [Unknown]
